FAERS Safety Report 17920811 (Version 3)
Quarter: 2020Q2

REPORT INFORMATION
  Report Type: Spontaneous
  Country: AU (occurrence: AU)
  Receive Date: 20200622
  Receipt Date: 20200630
  Transmission Date: 20200714
  Serious: Yes (Hospitalization, Other)
  Sender: FDA-Public Use
  Company Number: AU-CELLTRION INC.-2018AU024186

PATIENT

DRUGS (15)
  1. LANSOPRAZOLE. [Concomitant]
     Active Substance: LANSOPRAZOLE
     Dosage: 30 MG
  2. INFLECTRA [Suspect]
     Active Substance: INFLIXIMAB-DYYB
     Indication: TAKAYASU^S ARTERITIS
     Dosage: 300 MG, 6 WEEKLY
     Route: 042
     Dates: start: 2016, end: 2018
  3. FRUSEMIDE [FUROSEMIDE] [Concomitant]
     Active Substance: FUROSEMIDE
     Dosage: 1 TABLET, MONDAY, WEDNESDAY AND FRIDAY
     Route: 048
  4. FERROGRAD C [Concomitant]
     Active Substance: ASCORBIC ACID\FERROUS SULFATE
     Dosage: 1 TABLET, DAILY
     Route: 048
  5. PANTOPRAZOLE [Concomitant]
     Active Substance: PANTOPRAZOLE
     Indication: GASTRIC PH DECREASED
     Dosage: 1 TABLET, DAILY
     Route: 048
  6. ASPIRIN [ACETYLSALICYLIC ACID] [Concomitant]
     Active Substance: ASPIRIN
     Indication: PROPHYLAXIS
     Dosage: 1 TABLET, 1X/DAY (AFTER FOOD)
     Route: 048
  7. INFLECTRA [Suspect]
     Active Substance: INFLIXIMAB-DYYB
     Dosage: 300 MG, 6 WEEKLY
     Route: 042
     Dates: start: 20200617
  8. PREDNISONE. [Concomitant]
     Active Substance: PREDNISONE
     Indication: TAKAYASU^S ARTERITIS
     Dosage: 2.5 MG, DAILY
  9. PREDNISONE. [Concomitant]
     Active Substance: PREDNISONE
     Dosage: 5 MG, DAILY
  10. FISH OIL [Concomitant]
     Active Substance: FISH OIL
     Dosage: 1 CAPSULE, DAILY
     Route: 048
  11. MEGAFOL [Concomitant]
     Active Substance: FOLIC ACID
     Dosage: 1 TABLET, DAILY
     Route: 048
  12. BACTRIM DS [Concomitant]
     Active Substance: SULFAMETHOXAZOLE\TRIMETHOPRIM
     Indication: ANTIFUNGAL PROPHYLAXIS
     Dosage: 1 TABLET, 3X/DAY
     Route: 048
  13. PREDNISONE. [Concomitant]
     Active Substance: PREDNISONE
     Dosage: 50 MG, DAILY
     Route: 048
  14. PREDNISONE. [Concomitant]
     Active Substance: PREDNISONE
     Dosage: 45 MG, DAILY
  15. COLECALCIFEROL [Concomitant]
     Active Substance: CHOLECALCIFEROL
     Indication: VITAMIN D DECREASED
     Dosage: 1 TABLET, DAILY
     Route: 048

REACTIONS (7)
  - Condition aggravated [Recovering/Resolving]
  - Suicidal ideation [Unknown]
  - Adjustment disorder with depressed mood [Unknown]
  - Drug ineffective for unapproved indication [Unknown]
  - Hypertension [Unknown]
  - Migraine [Unknown]
  - Off label use [Unknown]

NARRATIVE: CASE EVENT DATE: 2016
